FAERS Safety Report 5314964-5 (Version None)
Quarter: 2007Q2

REPORT INFORMATION
  Report Type: 
  Country: None (occurrence: None)
  Receive Date: 20070502
  Receipt Date: 20070419
  Transmission Date: 20071010
  Serious: Yes (Other)
  Sender: FDA-Public Use
  Company Number: US-ELI_LILLY_AND_COMPANY-US200704004677

PATIENT
  Age: 36 Year
  Sex: Male

DRUGS (2)
  1. CYMBALTA [Suspect]
     Dosage: 30 MG, UNK
     Dates: start: 20061001
  2. REMERON [Concomitant]
     Indication: INSOMNIA
     Dosage: 7.5 MG, UNK

REACTIONS (3)
  - ALCOHOL INTOLERANCE [None]
  - AMNESIA [None]
  - LOSS OF CONSCIOUSNESS [None]
